FAERS Safety Report 22131431 (Version 1)
Quarter: 2023Q1

REPORT INFORMATION
  Report Type: Spontaneous
  Country: US (occurrence: US)
  Receive Date: 20230323
  Receipt Date: 20230323
  Transmission Date: 20230418
  Serious: No
  Sender: FDA-Public Use
  Company Number: US-ALLERGAN-2230477US

PATIENT
  Age: 77 Year
  Sex: Female
  Weight: 54.431 kg

DRUGS (6)
  1. VANIQA [Suspect]
     Active Substance: EFLORNITHINE HYDROCHLORIDE
     Indication: Hair growth abnormal
     Dosage: 2 DF, QD
     Route: 003
  2. VANIQA [Suspect]
     Active Substance: EFLORNITHINE HYDROCHLORIDE
     Indication: Hair growth abnormal
  3. VANIQA [Suspect]
     Active Substance: EFLORNITHINE HYDROCHLORIDE
     Indication: Hair growth abnormal
  4. NAIR [Suspect]
     Active Substance: CALCIUM HYDROXIDE\SODIUM HYDROXIDE
     Indication: Hypertrichosis
     Route: 003
  5. PROPRANOLOL HYDROCHLORIDE [Concomitant]
     Active Substance: PROPRANOLOL HYDROCHLORIDE
     Indication: Blood pressure measurement
     Dosage: UNK UNK, QD
  6. LEVOTHYROXINE [Concomitant]
     Active Substance: LEVOTHYROXINE
     Indication: Hypothyroidism
     Dosage: UNK

REACTIONS (1)
  - Drug ineffective [Unknown]
